FAERS Safety Report 7230281-0 (Version None)
Quarter: 2011Q1

REPORT INFORMATION
  Report Type: 
  Country: None (occurrence: None)
  Receive Date: 20110118
  Receipt Date: 20110112
  Transmission Date: 20110831
  Serious: Yes (Other)
  Sender: FDA-Public Use
  Company Number: US-PFIZER INC-2011008044

PATIENT

DRUGS (1)
  1. CHANTIX [Suspect]

REACTIONS (2)
  - EYE SWELLING [None]
  - SWELLING FACE [None]
